FAERS Safety Report 8506490-7 (Version None)
Quarter: 2012Q3

REPORT INFORMATION
  Report Type: 
  Country: None (occurrence: None)
  Receive Date: 20120712
  Receipt Date: 20120705
  Transmission Date: 20120928
  Serious: Yes (Hospitalization, Other)
  Sender: FDA-Public Use
  Company Number: US-US-EMD SERONO, INC.-7009203

PATIENT
  Sex: Female

DRUGS (2)
  1. REBIF [Suspect]
     Indication: MULTIPLE SCLEROSIS
     Route: 058
     Dates: start: 20100618
  2. REBIF [Suspect]
     Route: 058

REACTIONS (12)
  - INJECTION SITE NODULE [None]
  - HAEMORRHAGE [None]
  - COLOSTOMY [None]
  - URINARY TRACT INFECTION [None]
  - URINARY BLADDER HAEMORRHAGE [None]
  - CONSTIPATION [None]
  - LARGE INTESTINAL ULCER [None]
  - INJECTION SITE PAIN [None]
  - DECUBITUS ULCER [None]
  - INJECTION SITE ERYTHEMA [None]
  - COLONIC POLYP [None]
  - PARAESTHESIA [None]
